FAERS Safety Report 4952824-X (Version None)
Quarter: 2006Q1

REPORT INFORMATION
  Report Type: 
  Country: None (occurrence: None)
  Receive Date: 20060324
  Receipt Date: 20051102
  Transmission Date: 20060701
  Serious: Yes (Hospitalization)
  Sender: FDA-Public Use
  Company Number: HQWYE420904NOV05

PATIENT
  Sex: Female
  Weight: 50 kg

DRUGS (11)
  1. ENBREL [Suspect]
     Indication: RHEUMATOID ARTHRITIS
     Route: 058
     Dates: start: 20050725, end: 20050919
  2. ENBREL [Suspect]
     Route: 058
     Dates: start: 20051101
  3. PREDNISOLONE [Suspect]
     Indication: RHEUMATOID ARTHRITIS
     Route: 048
  4. CEFTRIAXONE [Suspect]
     Indication: PYELONEPHRITIS ACUTE
     Dates: start: 20050925, end: 20050930
  5. ARAVA [Concomitant]
     Indication: RHEUMATOID ARTHRITIS
     Route: 048
     Dates: end: 20050721
  6. ETODOLAC [Concomitant]
     Indication: RHEUMATOID ARTHRITIS
     Route: 048
     Dates: end: 20050925
  7. FOSAMAX [Concomitant]
     Indication: OSTEOPOROSIS
     Route: 048
     Dates: end: 20050925
  8. ONE-ALPHA [Concomitant]
     Indication: OSTEOPOROSIS
     Route: 048
     Dates: end: 20050925
  9. MARZULENE [Concomitant]
     Indication: GASTRITIS
     Route: 048
     Dates: end: 20050925
  10. SELBEX [Concomitant]
     Indication: GASTRITIS
     Route: 048
     Dates: end: 20050925
  11. VOLTAREN [Concomitant]
     Indication: RHEUMATOID ARTHRITIS
     Route: 054
     Dates: end: 20050925

REACTIONS (4)
  - ATRIAL FIBRILLATION [None]
  - DRUG HYPERSENSITIVITY [None]
  - GASTROENTERITIS [None]
  - URINARY TRACT INFECTION [None]
